FAERS Safety Report 8312863-8 (Version None)
Quarter: 2012Q2

REPORT INFORMATION
  Report Type: 
  Country: None (occurrence: None)
  Receive Date: 20120426
  Receipt Date: 20120417
  Transmission Date: 20120825
  Serious: No
  Sender: FDA-Public Use
  Company Number: US-PFIZER INC-2012095312

PATIENT
  Sex: Female
  Weight: 81.6 kg

DRUGS (4)
  1. LYRICA [Suspect]
     Indication: CHEST PAIN
  2. SYNTHROID [Concomitant]
     Indication: THYROID DISORDER
     Dosage: 175 UG, DAILY
  3. ZESTRIL [Concomitant]
     Indication: BLOOD PRESSURE ABNORMAL
     Dosage: 10 MG, DAILY
  4. LYRICA [Suspect]
     Indication: HERPES ZOSTER
     Dosage: 50 MG, 3X/DAY
     Route: 048
     Dates: start: 20120330, end: 20120416

REACTIONS (4)
  - CHEST DISCOMFORT [None]
  - COUGH [None]
  - HERPES ZOSTER [None]
  - DRUG INEFFECTIVE [None]
